FAERS Safety Report 23462156 (Version 1)
Quarter: 2024Q1

REPORT INFORMATION
  Report Type: Spontaneous
  Country: OM (occurrence: OM)
  Receive Date: 20240131
  Receipt Date: 20240131
  Transmission Date: 20240409
  Serious: Yes (Other)
  Sender: FDA-Public Use
  Company Number: OM-002147023-NVSC2024OM020204

PATIENT
  Age: 24 Year
  Sex: Male

DRUGS (3)
  1. TASIGNA [Suspect]
     Active Substance: NILOTINIB
     Indication: Chronic myeloid leukaemia
     Dosage: 300 MG, Q12H (TABLET)
     Route: 048
     Dates: start: 201906
  2. TASIGNA [Suspect]
     Active Substance: NILOTINIB
     Dosage: 400 MG, QD (TABLET)
     Route: 048
     Dates: end: 202106
  3. IMATINIB [Suspect]
     Active Substance: IMATINIB
     Indication: Product used for unknown indication
     Dosage: 400 MG
     Route: 065

REACTIONS (4)
  - Skin toxicity [Not Recovered/Not Resolved]
  - Alopecia [Recovered/Resolved]
  - Rash maculo-papular [Recovered/Resolved]
  - Hypoglycaemia [Unknown]

NARRATIVE: CASE EVENT DATE: 20200601
